FAERS Safety Report 8196260-4 (Version None)
Quarter: 2012Q1

REPORT INFORMATION
  Report Type: 
  Country: None (occurrence: None)
  Receive Date: 20120309
  Receipt Date: 20120307
  Transmission Date: 20120608
  Serious: Yes (Other)
  Sender: FDA-Public Use
  Company Number: US-PFIZER INC-2012061939

PATIENT
  Sex: Male
  Weight: 97 kg

DRUGS (5)
  1. KLONOPIN [Concomitant]
     Indication: DEPRESSION
  2. SINEMET [Concomitant]
     Indication: PARKINSON'S DISEASE
     Dosage: UNK
  3. PRAVASTATIN [Concomitant]
     Indication: CARDIOVASCULAR DISORDER
     Dosage: UNK
  4. CHANTIX [Suspect]
     Indication: SMOKING CESSATION THERAPY
     Dosage: 1 MG, 2X/DAY
     Route: 048
     Dates: start: 20120101, end: 20120101
  5. KLONOPIN [Concomitant]
     Indication: ANXIETY
     Dosage: UNK

REACTIONS (4)
  - TREMOR [None]
  - HYPOAESTHESIA [None]
  - FEELING JITTERY [None]
  - CONVULSION [None]
